FAERS Safety Report 14201754 (Version 4)
Quarter: 2018Q1

REPORT INFORMATION
  Report Type: Other
  Country: CA (occurrence: CA)
  Receive Date: 20171117
  Receipt Date: 20180302
  Transmission Date: 20180508
  Serious: Yes (Other)
  Sender: FDA-Public Use
  Company Number: CA-INTERCEPT-PMOCA2017001217

PATIENT

DRUGS (9)
  1. CALCIUM [Concomitant]
     Active Substance: CALCIUM
     Dosage: UNK
     Dates: start: 2008
  2. OCALIVA [Suspect]
     Active Substance: OBETICHOLIC ACID
     Indication: PRIMARY BILIARY CHOLANGITIS
     Dosage: 5 MG, QD
     Route: 048
     Dates: start: 20171006, end: 20171104
  3. VITAMIN D [Concomitant]
     Active Substance: CHOLECALCIFEROL
     Dosage: UNK
     Dates: start: 2008
  4. URSO [Concomitant]
     Active Substance: URSODIOL
     Dosage: 250 MG, TID
     Route: 048
     Dates: start: 2009, end: 20171215
  5. LIPIDIL [Concomitant]
     Active Substance: FENOFIBRATE
     Dosage: UNK
     Dates: start: 2008
  6. PREDNISONE. [Concomitant]
     Active Substance: PREDNISONE
     Dosage: UNK
     Dates: start: 20171215
  7. ALENDRONATE [Concomitant]
     Active Substance: ALENDRONATE SODIUM
     Dosage: UNK
     Dates: start: 2008
  8. URSO [Concomitant]
     Active Substance: URSODIOL
     Dosage: 1000 MG, UNK
     Route: 048
     Dates: start: 20171215
  9. IMURAN [Concomitant]
     Active Substance: AZATHIOPRINE

REACTIONS (10)
  - Blood bilirubin increased [Unknown]
  - Diarrhoea [Unknown]
  - Sleep disorder [Unknown]
  - Head discomfort [Unknown]
  - Jaundice [Unknown]
  - Vomiting [Unknown]
  - Model for end stage liver disease score increased [Unknown]
  - Skin irritation [Not Recovered/Not Resolved]
  - Pruritus [Not Recovered/Not Resolved]
  - Fatigue [Unknown]

NARRATIVE: CASE EVENT DATE: 201710
